FAERS Safety Report 23768237 (Version 1)
Quarter: 2024Q2

REPORT INFORMATION
  Report Type: Spontaneous
  Country: US (occurrence: None)
  Receive Date: 20240419
  Receipt Date: 20240419
  Transmission Date: 20240715
  Serious: Yes (Other)
  Sender: FDA-Public Use
  Company Number: None

PATIENT
  Age: 53 Year
  Sex: Female
  Weight: 77.85 kg

DRUGS (15)
  1. ARMODAFINIL [Suspect]
     Active Substance: ARMODAFINIL
     Indication: Somnolence
     Route: 048
     Dates: start: 20240402, end: 20240415
  2. OXYCODONE [Concomitant]
     Active Substance: OXYCODONE\OXYCODONE HYDROCHLORIDE
  3. OXAZEPAM [Concomitant]
     Active Substance: OXAZEPAM
  4. TRAZODONE [Concomitant]
     Active Substance: TRAZODONE HYDROCHLORIDE
  5. Lamotriegne [Concomitant]
  6. ADDERALL [Concomitant]
     Active Substance: AMPHETAMINE ASPARTATE\AMPHETAMINE SULFATE\DEXTROAMPHETAMINE SACCHARATE\DEXTROAMPHETAMINE SULFATE
  7. METHOCARBAMOL [Concomitant]
     Active Substance: METHOCARBAMOL
  8. Venaxalene [Concomitant]
  9. DEVICE [Concomitant]
     Active Substance: DEVICE
  10. FOLIC ACID [Concomitant]
     Active Substance: FOLIC ACID
  11. Multi vitmamin [Concomitant]
  12. CALCIUM [Concomitant]
  13. MAGNESIUM [Concomitant]
     Active Substance: MAGNESIUM
  14. VITAMIN D3 [Concomitant]
     Active Substance: CHOLECALCIFEROL
  15. OMEGA 3 [Concomitant]
     Active Substance: CAPSAICIN

REACTIONS (12)
  - Impaired gastric emptying [None]
  - Abdominal pain upper [None]
  - Abdominal distension [None]
  - Vomiting [None]
  - Dehydration [None]
  - Chest discomfort [None]
  - Somnolence [None]
  - Dizziness [None]
  - Disturbance in attention [None]
  - Vision blurred [None]
  - Eyelid disorder [None]
  - Therapy cessation [None]

NARRATIVE: CASE EVENT DATE: 20240402
